FAERS Safety Report 13407113 (Version 3)
Quarter: 2017Q3

REPORT INFORMATION
  Report Type: Report from Study
  Country: US (occurrence: US)
  Receive Date: 20170405
  Receipt Date: 20170721
  Transmission Date: 20171127
  Serious: No
  Sender: FDA-Public Use
  Company Number: GXBR2017US001102

PATIENT
  Sex: Female

DRUGS (1)
  1. OMNITROPE [Suspect]
     Active Substance: SOMATROPIN
     Indication: BODY HEIGHT BELOW NORMAL
     Dosage: 1.1 MG, QD
     Route: 058
     Dates: start: 201208

REACTIONS (2)
  - Incorrect dose administered [Recovered/Resolved]
  - Drug administered in wrong device [Recovered/Resolved]
